FAERS Safety Report 4623112-6 (Version None)
Quarter: 2005Q1

REPORT INFORMATION
  Report Type: 
  Country: None (occurrence: None)
  Receive Date: 20050328
  Receipt Date: 20050328
  Transmission Date: 20050727
  Serious: Yes (Hospitalization)
  Sender: FDA-Public Use
  Company Number: None

PATIENT
  Age: 56 Year
  Sex: Male
  Weight: 189.23 kg

DRUGS (2)
  1. CAPECITABINE    1250MG/M2 [Suspect]
     Indication: COLON CANCER
     Dosage: 1650MG   DAILY   ORAL
     Route: 048
     Dates: start: 20050306, end: 20050325
  2. CPT-11     50MG/M2 [Suspect]
     Dosage: 192.6 + 107MG    1 WEEKLY X 3    INTRAVENOU
     Route: 042
     Dates: start: 20050308, end: 20050322

REACTIONS (1)
  - CHEST PAIN [None]
